FAERS Safety Report 17198746 (Version 1)
Quarter: 2019Q4

REPORT INFORMATION
  Report Type: Spontaneous
  Country: US (occurrence: US)
  Receive Date: 20191225
  Receipt Date: 20191225
  Transmission Date: 20200122
  Serious: No
  Sender: FDA-Public Use
  Company Number: US-TEVA-2019-US-1156353

PATIENT

DRUGS (1)
  1. SILDENAFIL TEVA [Suspect]
     Active Substance: SILDENAFIL
     Indication: PULMONARY HYPERTENSION
     Route: 065

REACTIONS (4)
  - Dyspnoea [Unknown]
  - Hypoacusis [Unknown]
  - Product substitution issue [Unknown]
  - Therapeutic product effect incomplete [Unknown]
